FAERS Safety Report 14796474 (Version 3)
Quarter: 2018Q4

REPORT INFORMATION
  Report Type: Report from Study
  Country: US (occurrence: US)
  Receive Date: 20180423
  Receipt Date: 20181017
  Transmission Date: 20190204
  Serious: No
  Sender: FDA-Public Use
  Company Number: US-AMGEN-USASL2018008391

PATIENT
  Age: 61 Year
  Sex: Female
  Weight: 104.76 kg

DRUGS (4)
  1. REPATHA [Suspect]
     Active Substance: EVOLOCUMAB
     Indication: BLOOD CHOLESTEROL INCREASED
  2. LYRICA [Concomitant]
     Active Substance: PREGABALIN
     Indication: FIBROMYALGIA
     Dosage: 50 MG, TID
     Route: 065
     Dates: start: 20160315
  3. REPATHA [Suspect]
     Active Substance: EVOLOCUMAB
     Indication: HYPERCHOLESTEROLAEMIA
     Dosage: 140 MG, Q2WK
     Route: 065
     Dates: start: 20180114
  4. PLAVIX [Concomitant]
     Active Substance: CLOPIDOGREL BISULFATE
     Indication: CORONARY ARTERY DISEASE
     Dosage: 75 MG, QD
     Route: 065
     Dates: start: 20130722

REACTIONS (7)
  - Hyperglycaemia [Not Recovered/Not Resolved]
  - Musculoskeletal pain [Unknown]
  - Non-high-density lipoprotein cholesterol increased [Unknown]
  - Muscle injury [Unknown]
  - Neck pain [Unknown]
  - Blood triglycerides increased [Unknown]
  - Low density lipoprotein increased [Unknown]

NARRATIVE: CASE EVENT DATE: 2018
